FAERS Safety Report 10343234 (Version 2)
Quarter: 2014Q3

REPORT INFORMATION
  Report Type: Spontaneous
  Country: US (occurrence: US)
  Receive Date: 20140725
  Receipt Date: 20140725
  Transmission Date: 20150326
  Serious: Yes (Hospitalization, Other)
  Sender: FDA-Public Use
  Company Number: US-009507513-2011SP025636

PATIENT
  Sex: Female
  Weight: 83.92 kg

DRUGS (2)
  1. NUVARING [Suspect]
     Active Substance: ETHINYL ESTRADIOL\ETONOGESTREL
     Indication: MENORRHAGIA
  2. NUVARING [Suspect]
     Active Substance: ETHINYL ESTRADIOL\ETONOGESTREL
     Indication: ENDOMETRIOSIS
     Route: 067
     Dates: start: 20090107, end: 200906

REACTIONS (7)
  - Ovarian cyst [Unknown]
  - Deep vein thrombosis [Recovered/Resolved]
  - Pain [Unknown]
  - Cholecystitis [Unknown]
  - Abdominal pain lower [Unknown]
  - Off label use [Unknown]
  - Renal cyst [Unknown]

NARRATIVE: CASE EVENT DATE: 200903
